FAERS Safety Report 9220574 (Version 1)
Quarter: 2013Q1

REPORT INFORMATION
  Report Type: Spontaneous
  Country: US (occurrence: US)
  Receive Date: 20120831
  Receipt Date: 20120831
  Transmission Date: 20140127
  Serious: No
  Sender: FDA-Public Use
  Company Number: 1000031089

PATIENT
  Age: 61 Year
  Sex: Male

DRUGS (13)
  1. DALIRESP [Suspect]
     Indication: CHRONIC OBSTRUCTIVE PULMONARY DISEASE
     Route: 048
     Dates: start: 20120531
  2. REMICADE (INFLIXIMAB) [Concomitant]
  3. ZANTAC (RANITIDINE HYDROCHLORIDE) [Concomitant]
  4. PREDNISONE (PREDNISONE)(PREDNISONE) [Concomitant]
  5. LORATADINE (LORATADINE)(LORATADINE) [Concomitant]
  6. DEPLIN (CALCIUM LEVOMEFOLATE) [Concomitant]
  7. LISINOPRIL (LISINOPRIL)(LISINOPRIL) [Concomitant]
  8. FOLIC ACID (FOLIC ACID)(FOLIC ACID) [Concomitant]
  9. TYLENOL #3 (ACETAMINOPHEN, CODEINE)(ACETAMINOPHEN, CODEINE) [Concomitant]
  10. SYMBICORT (BUDESONIDE, FORMOTEROL)(BUDESONIDE, FORMOTEROL) [Concomitant]
  11. PROVENTIL HFA (ALBUTEROL)(ALBUTEROL) [Concomitant]
  12. METHOTREXATE (METHOTREXATE)(METHOTREXATE) [Concomitant]
  13. ZOLOFT (SERTRALINE HYDROCHLORIDE)(SERTRALINE HYDROCHLORIDE) [Concomitant]

REACTIONS (1)
  - Headache [None]
